FAERS Safety Report 25544287 (Version 1)
Quarter: 2025Q3

REPORT INFORMATION
  Report Type: Spontaneous
  Country: GB (occurrence: None)
  Receive Date: 20250711
  Receipt Date: 20250711
  Transmission Date: 20251021
  Serious: Yes (Disabling)
  Sender: FDA-CTU
  Company Number: None

PATIENT
  Age: 62 Year
  Sex: Female
  Weight: 50.4 kg

DRUGS (3)
  1. VENLAFAXINE [Suspect]
     Active Substance: VENLAFAXINE HYDROCHLORIDE
     Indication: Depression
     Dates: start: 20150107, end: 20200101
  2. MAGNESIUM [Concomitant]
     Active Substance: MAGNESIUM
  3. IRON [Concomitant]
     Active Substance: IRON

REACTIONS (2)
  - Withdrawal syndrome [None]
  - Disability [None]

NARRATIVE: CASE EVENT DATE: 20200110
